FAERS Safety Report 21976389 (Version 2)
Quarter: 2023Q1

REPORT INFORMATION
  Report Type: Report from Study
  Country: DE (occurrence: DE)
  Receive Date: 20230210
  Receipt Date: 20230221
  Transmission Date: 20230417
  Serious: Yes (Death)
  Sender: FDA-Public Use
  Company Number: DE-002147023-NVSC2023DE029897

PATIENT
  Sex: Female

DRUGS (3)
  1. KISQALI [Suspect]
     Active Substance: RIBOCICLIB
     Indication: Breast cancer metastatic
     Dosage: 600 MG, QD REGIMEN 21 DAYS INTAKE, 7 DAYS PAUSE
     Route: 048
     Dates: start: 20200624, end: 20210103
  2. KISQALI [Suspect]
     Active Substance: RIBOCICLIB
     Dosage: 600 MG, QD REGIMEN 21 DAYS INTAKE, 7 DAYS PAUSE
     Route: 048
     Dates: start: 20210206, end: 20211227
  3. LETROZOLE [Suspect]
     Active Substance: LETROZOLE
     Indication: Breast cancer metastatic
     Dosage: 2.5 MG, QD
     Route: 048
     Dates: start: 20200624

REACTIONS (1)
  - Death [Fatal]

NARRATIVE: CASE EVENT DATE: 20220209
